FAERS Safety Report 18071757 (Version 1)
Quarter: 2020Q3

REPORT INFORMATION
  Report Type: Spontaneous
  Country: PT (occurrence: PT)
  Receive Date: 20200727
  Receipt Date: 20200727
  Transmission Date: 20201103
  Serious: Yes (Life-Threatening)
  Sender: FDA-Public Use
  Company Number: PT-TEVA-2020-PT-1804993

PATIENT
  Age: 82 Year
  Weight: 80 kg

DRUGS (6)
  1. BETAHISTINE [Concomitant]
     Active Substance: BETAHISTINE
     Route: 048
  2. SIMVASTATIN, EZETIMIBE [Suspect]
     Active Substance: EZETIMIBE\SIMVASTATIN
     Indication: DYSLIPIDAEMIA
     Dosage: 1 DOSAGE FORMS DAILY; 1CP / DAY,
     Route: 048
     Dates: end: 20200529
  3. AMIODARONE [Concomitant]
     Active Substance: AMIODARONE
     Route: 048
  4. DUTASTERIDE, TAMSULOSIN [Concomitant]
     Route: 048
  5. OLMESARTAN MEDOXOMIL, AMLODIPINE [Concomitant]
     Route: 048
  6. ALLOPURINOL. [Concomitant]
     Active Substance: ALLOPURINOL
     Route: 048

REACTIONS (1)
  - Pancreatitis acute [Recovering/Resolving]

NARRATIVE: CASE EVENT DATE: 20200529
